FAERS Safety Report 9940500 (Version 2)
Quarter: 2020Q3

REPORT INFORMATION
  Report Type: Spontaneous
  Country: BR (occurrence: BR)
  Receive Date: 20140303
  Receipt Date: 20200716
  Transmission Date: 20201103
  Serious: Yes (Other)
  Sender: FDA-Public Use
  Company Number: BR-PFIZER INC-2014056625

PATIENT
  Age: 73 Year
  Sex: Female

DRUGS (5)
  1. XALATAN [Suspect]
     Active Substance: LATANOPROST
     Dosage: UNK
  2. XALATAN [Suspect]
     Active Substance: LATANOPROST
     Indication: GLAUCOMA
     Dosage: 1 (AS REPORTED)
     Dates: start: 20040418
  3. ATACAND [Concomitant]
     Active Substance: CANDESARTAN CILEXETIL
     Indication: BLOOD PRESSURE MEASUREMENT
     Dosage: UNSPECIFIED DOSE, 1X/DAY
  4. XALATAN [Suspect]
     Active Substance: LATANOPROST
     Dosage: UNK
  5. CEWIN [Concomitant]
     Active Substance: ASCORBIC ACID
     Dosage: UNK

REACTIONS (2)
  - Intraocular pressure increased [Unknown]
  - Cataract [Unknown]

NARRATIVE: CASE EVENT DATE: 2010
